FAERS Safety Report 8962306 (Version 1)
Quarter: 2012Q4

REPORT INFORMATION
  Report Type: Spontaneous
  Country: US (occurrence: None)
  Receive Date: 20121203
  Receipt Date: 20121203
  Transmission Date: 20130627
  Serious: Yes (Life-Threatening, Hospitalization)
  Sender: FDA-Public Use
  Company Number: DSA_56448_2012

PATIENT
  Sex: Female

DRUGS (10)
  1. XENAZINE 12.5 MG (NOT SPECIFIED) [Suspect]
     Indication: HUNTINGTON^S DISEASE
     Route: 048
     Dates: start: 200912
  2. KLONOPIN [Suspect]
     Indication: PRODUCT USED FOR UNKNOWN INDICATION
     Dosage: DF
  3. FLEXERIL [Suspect]
     Indication: PRODUCT USED FOR UNKNOWN INDICATION
     Dosage: DF
  4. ATENOLOL [Concomitant]
  5. OMEPRAZOLE [Concomitant]
  6. BENZTROPINE [Concomitant]
  7. AMBIEN [Concomitant]
  8. FLUOXETINE [Concomitant]
  9. FLONASE [Concomitant]
  10. SEROQUEL [Concomitant]

REACTIONS (3)
  - Choking [None]
  - Depression [None]
  - Suicide attempt [None]
